FAERS Safety Report 10214744 (Version 1)
Quarter: 2014Q2

REPORT INFORMATION
  Report Type: Spontaneous
  Country: DE (occurrence: DE)
  Receive Date: 20140603
  Receipt Date: 20140603
  Transmission Date: 20141212
  Serious: Yes (Hospitalization)
  Sender: FDA-Public Use
  Company Number: DE-JNJFOC-20140600973

PATIENT
  Sex: 0

DRUGS (2)
  1. EVITHROM [Suspect]
     Indication: PRODUCT USED FOR UNKNOWN INDICATION
     Route: 061
     Dates: start: 20140520
  2. LOCAL HAEMOSTATICS [Concomitant]
     Indication: PRODUCT USED FOR UNKNOWN INDICATION
     Route: 061
     Dates: start: 20140520

REACTIONS (2)
  - Surgery [Unknown]
  - Product physical consistency issue [Unknown]
